FAERS Safety Report 8963803 (Version 1)
Quarter: 2012Q4

REPORT INFORMATION
  Report Type: 
  Country: FR (occurrence: FR)
  Receive Date: 20121214
  Receipt Date: 20121214
  Transmission Date: 20130627
  Serious: Yes (Hospitalization)
  Sender: FDA-Public Use
  Company Number: FR-SP-2012-11608

PATIENT
  Age: 83 Year
  Sex: Male

DRUGS (5)
  1. IMMUCYST 81 MG [Suspect]
     Indication: BLADDER CANCER
     Route: 043
     Dates: start: 20120626, end: 20120626
  2. LOSARTAN AND HYDROCHLOROTHIAZIDE (FORTZAAR) [Concomitant]
     Indication: HYPERTENSION
     Route: 048
  3. LERCANIDIPINE [Concomitant]
     Route: 048
  4. NAFTIDOFURYL (PRAXILENE) [Concomitant]
     Route: 048
  5. CLOPIDOGREL (PLAVIX) [Concomitant]
     Route: 048

REACTIONS (3)
  - Haematuria [Recovered/Resolved]
  - Haemorrhage urinary tract [Recovered/Resolved]
  - Anaemia [Recovering/Resolving]
